FAERS Safety Report 15571202 (Version 1)
Quarter: 2018Q4

REPORT INFORMATION
  Report Type: Spontaneous
  Country: IT (occurrence: IT)
  Receive Date: 20181031
  Receipt Date: 20181031
  Transmission Date: 20190205
  Serious: Yes (Other)
  Sender: FDA-Public Use
  Company Number: IT-TEVA-2018-IT-968645

PATIENT
  Age: 61 Year
  Sex: Female

DRUGS (1)
  1. AMOXICILLINA E ACIDO CLAVULANICO TEVA GENERICS [Suspect]
     Active Substance: AMOXICILLIN\CLAVULANIC ACID
     Indication: DENTAL OPERATION
     Dosage: 875MG/125 MG, 2 TABLETS IN TOTAL
     Route: 048
     Dates: start: 20180926

REACTIONS (7)
  - Anaphylactic shock [Recovered/Resolved]
  - Hypovolaemia [Recovered/Resolved]
  - Dysphonia [Recovered/Resolved]
  - Hypotension [Recovered/Resolved]
  - Erythema [Recovered/Resolved]
  - Swelling [Recovered/Resolved]
  - Eye swelling [Recovered/Resolved]
